FAERS Safety Report 23796210 (Version 1)
Quarter: 2024Q2

REPORT INFORMATION
  Report Type: Report from Study
  Country: CA (occurrence: CA)
  Receive Date: 20240430
  Receipt Date: 20240430
  Transmission Date: 20240716
  Serious: Yes (Other)
  Sender: FDA-Public Use
  Company Number: CA-ABBVIE-5736317

PATIENT
  Age: 74 Year
  Sex: Male

DRUGS (1)
  1. LUPRON DEPOT [Suspect]
     Active Substance: LEUPROLIDE ACETATE
     Indication: Prostate cancer
     Route: 030
     Dates: start: 20200814

REACTIONS (6)
  - Neoplasm malignant [Recovering/Resolving]
  - Tooth extraction [Recovered/Resolved]
  - Cerebrovascular accident [Unknown]
  - Scab [Recovering/Resolving]
  - Skin discolouration [Recovering/Resolving]
  - Oral contusion [Recovered/Resolved]

NARRATIVE: CASE EVENT DATE: 20211001
